FAERS Safety Report 5467193-9 (Version None)
Quarter: 2007Q3

REPORT INFORMATION
  Report Type: 
  Country: None (occurrence: None)
  Receive Date: 20070925
  Receipt Date: 20070323
  Transmission Date: 20080115
  Serious: Yes (Death, Hospitalization)
  Sender: FDA-Public Use
  Company Number: PH-ASTRAZENECA-2007AP01387

PATIENT
  Age: 49 Year
  Sex: Male

DRUGS (3)
  1. MERONEM [Suspect]
     Indication: SEPSIS
     Route: 042
     Dates: start: 20070226, end: 20070227
  2. METFORMIN HCL [Concomitant]
     Dosage: MORE THAN 5 YEARS
  3. LOGIMAX [Concomitant]
     Dosage: POOR COMPLIANCE FOR MORE THAN 5 YEARS

REACTIONS (4)
  - DEATH [None]
  - HYPOTENSION [None]
  - POOR QUALITY DRUG ADMINISTERED [None]
  - PYREXIA [None]
